FAERS Safety Report 9363931 (Version 1)
Quarter: 2013Q2

REPORT INFORMATION
  Report Type: Spontaneous
  Country: JP (occurrence: JP)
  Receive Date: 20130624
  Receipt Date: 20130624
  Transmission Date: 20140414
  Serious: Yes (Death, Hospitalization)
  Sender: FDA-Public Use
  Company Number: JP-SANOFI-AVENTIS-2012SA050136

PATIENT
  Age: 69 Year
  Sex: Male
  Weight: 61 kg

DRUGS (24)
  1. FLUOROURACIL [Suspect]
     Indication: RECTAL CANCER
     Dosage: BOLUS
     Dates: start: 2010, end: 2010
  2. FLUOROURACIL [Suspect]
     Indication: METASTASES TO LIVER
     Dosage: BOLUS
     Dates: start: 2010, end: 2010
  3. FLUOROURACIL [Suspect]
     Indication: RECTAL CANCER
     Dosage: CONTINUOUS INFUSION?1-5 CYCLE
     Route: 065
     Dates: start: 2010
  4. FLUOROURACIL [Suspect]
     Indication: METASTASES TO LIVER
     Dosage: CONTINUOUS INFUSION?1-5 CYCLE
     Route: 065
     Dates: start: 2010
  5. FLUOROURACIL [Suspect]
     Indication: RECTAL CANCER
     Dosage: CONTINUOUS INFUSION
     Route: 065
  6. FLUOROURACIL [Suspect]
     Indication: METASTASES TO LIVER
     Dosage: CONTINUOUS INFUSION
     Route: 065
  7. FLUOROURACIL [Suspect]
     Indication: RECTAL CANCER
     Dosage: BOLUS
  8. FLUOROURACIL [Suspect]
     Indication: METASTASES TO LIVER
     Dosage: BOLUS
  9. OXALIPLATIN [Suspect]
     Indication: RECTAL CANCER
     Route: 041
     Dates: start: 2010
  10. OXALIPLATIN [Suspect]
     Indication: METASTASES TO LIVER
     Route: 041
     Dates: start: 2010
  11. OXALIPLATIN [Suspect]
     Indication: RECTAL CANCER
     Route: 041
  12. OXALIPLATIN [Suspect]
     Indication: METASTASES TO LIVER
     Route: 041
  13. LEUCOVORIN [Suspect]
     Indication: RECTAL CANCER
     Dosage: BOLUS
     Route: 065
     Dates: start: 2010
  14. LEUCOVORIN [Suspect]
     Indication: METASTASES TO LIVER
     Dosage: BOLUS
     Route: 065
     Dates: start: 2010
  15. LEUCOVORIN [Suspect]
     Indication: RECTAL CANCER
     Dosage: BOLUS
     Route: 065
  16. LEUCOVORIN [Suspect]
     Indication: METASTASES TO LIVER
     Dosage: BOLUS
     Route: 065
  17. ERBITUX [Suspect]
     Indication: RECTAL CANCER
     Route: 065
     Dates: start: 2010, end: 2010
  18. ERBITUX [Suspect]
     Indication: METASTASES TO LIVER
     Route: 065
     Dates: start: 2010, end: 2010
  19. ERBITUX [Suspect]
     Indication: RECTAL CANCER
     Route: 065
     Dates: start: 2010
  20. ERBITUX [Suspect]
     Indication: METASTASES TO LIVER
     Route: 065
     Dates: start: 2010
  21. ERBITUX [Suspect]
     Indication: RECTAL CANCER
     Route: 065
  22. ERBITUX [Suspect]
     Indication: METASTASES TO LIVER
     Route: 065
  23. ERBITUX [Suspect]
     Indication: RECTAL CANCER
     Route: 065
  24. ERBITUX [Suspect]
     Indication: METASTASES TO LIVER
     Route: 065

REACTIONS (6)
  - Interstitial lung disease [Unknown]
  - C-reactive protein increased [Unknown]
  - Dyspnoea [Recovered/Resolved]
  - Blood lactate dehydrogenase increased [Unknown]
  - Cell marker increased [Not Recovered/Not Resolved]
  - Respiratory failure [Fatal]
